FAERS Safety Report 4625503-6 (Version None)
Quarter: 2005Q2

REPORT INFORMATION
  Report Type: 
  Country: None (occurrence: None)
  Receive Date: 20050401
  Receipt Date: 20050322
  Transmission Date: 20051028
  Serious: Yes (Other)
  Sender: FDA-Public Use
  Company Number: GR-ABBOTT-05P-066-0294801-00

PATIENT
  Age: 45 Year
  Sex: Female
  Weight: 82 kg

DRUGS (3)
  1. REDUCTIL 15MG [Suspect]
     Indication: OBESITY
     Route: 048
     Dates: start: 20050201
  2. REDUCTIL 15MG [Suspect]
     Dates: start: 20040701, end: 20050201
  3. LEVOTHYROXINE [Concomitant]
     Indication: HYPOTHYROIDISM
     Route: 048

REACTIONS (2)
  - EXTRASYSTOLES [None]
  - HYPERTENSION [None]
